APPROVED DRUG PRODUCT: RANOLAZINE
Active Ingredient: RANOLAZINE
Strength: 500MG
Dosage Form/Route: TABLET, EXTENDED RELEASE;ORAL
Application: A208862 | Product #001 | TE Code: AB
Applicant: ACTAVIS ELIZABETH LLC
Approved: May 28, 2019 | RLD: No | RS: No | Type: RX